FAERS Safety Report 10891555 (Version 1)
Quarter: 2015Q1

REPORT INFORMATION
  Report Type: Report from Study
  Country: US (occurrence: US)
  Receive Date: 20150306
  Receipt Date: 20150306
  Transmission Date: 20150721
  Serious: Yes (Hospitalization)
  Sender: FDA-Public Use
  Company Number: US-GLAXOSMITHKLINE-A0987219A

PATIENT
  Age: 59 Year
  Sex: Female
  Weight: 68 kg

DRUGS (17)
  1. QUINAPRIL [Concomitant]
     Active Substance: QUINAPRIL\QUINAPRIL HYDROCHLORIDE
     Dosage: UNK
     Dates: start: 2006
  2. LANTUS [Concomitant]
     Active Substance: INSULIN GLARGINE
     Dosage: UNK
     Dates: start: 2010
  3. METFORMIN [Concomitant]
     Active Substance: METFORMIN HYDROCHLORIDE
     Dosage: UNK
     Dates: start: 2000
  4. FOLIC ACID. [Concomitant]
     Active Substance: FOLIC ACID
     Dosage: UNK
     Dates: start: 2010
  5. CARVEDILOL. [Suspect]
     Active Substance: CARVEDILOL
     Indication: CORONARY ARTERY DISEASE
     Dosage: 12.5 MG, BID
     Route: 048
     Dates: start: 2008, end: 20120320
  6. BLINDED STUDY MEDICATION [Suspect]
     Active Substance: INVESTIGATIONAL PRODUCT
     Indication: ANGINA PECTORIS
     Dosage: 500 MG, BID
     Route: 048
     Dates: start: 20120313, end: 20120319
  7. PANTOPRAZOLE [Concomitant]
     Active Substance: PANTOPRAZOLE SODIUM
     Dosage: UNK
     Dates: start: 2010
  8. GLIMEPIRIDE. [Concomitant]
     Active Substance: GLIMEPIRIDE
     Dosage: UNK
     Dates: start: 2011
  9. BLINDED STUDY MEDICATION [Suspect]
     Active Substance: INVESTIGATIONAL PRODUCT
     Dosage: 1000 MG, BID
     Route: 048
     Dates: start: 20120320, end: 20120320
  10. CLOPIDOGREL [Concomitant]
     Active Substance: CLOPIDOGREL BISULFATE
     Dosage: UNK
     Dates: start: 200801
  11. SIMVASTATIN. [Concomitant]
     Active Substance: SIMVASTATIN
     Dosage: UNK
     Dates: start: 20120313
  12. LOVAZA [Concomitant]
     Active Substance: OMEGA-3-ACID ETHYL ESTERS
     Dosage: UNK
     Dates: start: 2006
  13. NOVOLOG [Concomitant]
     Active Substance: INSULIN ASPART
     Dosage: UNK
     Dates: start: 2010
  14. ASPIRIN. [Concomitant]
     Active Substance: ASPIRIN
     Dosage: UNK
     Dates: start: 2008
  15. IMDUR [Concomitant]
     Active Substance: ISOSORBIDE MONONITRATE
     Dosage: UNK
     Dates: start: 2008
  16. LEVOTHYROXINE [Concomitant]
     Active Substance: LEVOTHYROXINE
     Dosage: UNK
     Dates: start: 2006
  17. PROMETHAZINE [Concomitant]
     Active Substance: PROMETHAZINE\PROMETHAZINE HYDROCHLORIDE
     Dosage: UNK
     Dates: start: 2009

REACTIONS (5)
  - Non-cardiac chest pain [Recovered/Resolved]
  - Vomiting [Recovered/Resolved]
  - Hypomagnesaemia [Recovered/Resolved]
  - Nausea [Recovered/Resolved]
  - Dizziness [Recovered/Resolved]

NARRATIVE: CASE EVENT DATE: 20120314
